FAERS Safety Report 8298621-1 (Version None)
Quarter: 2012Q2

REPORT INFORMATION
  Report Type: 
  Country: None (occurrence: None)
  Receive Date: 20120419
  Receipt Date: 20080910
  Transmission Date: 20120825
  Serious: Yes (Other)
  Sender: FDA-Public Use
  Company Number: US-BAYER-200826113NA

PATIENT
  Sex: Male
  Weight: 68.8 kg

DRUGS (16)
  1. DILTIAZEM HCL [Concomitant]
     Dosage: DAILY DOSE 180 MG
  2. MAGNEVIST [Suspect]
     Indication: VENOGRAM
     Route: 042
  3. MAGNEVIST [Suspect]
     Indication: NUCLEAR MAGNETIC RESONANCE IMAGING
  4. ZEMPLAR [Concomitant]
     Dosage: 15 MCG/12 MCG
     Route: 042
  5. LASIX [Concomitant]
     Dosage: DAILY DOSE 20 MG
     Route: 048
  6. OMNISCAN [Suspect]
  7. VERAPAMIL [Concomitant]
  8. OMNISCAN [Suspect]
  9. METOPROLOL TARTRATE [Concomitant]
     Dosage: 50 MG, QD
     Route: 048
  10. METHOTREXATE [Concomitant]
     Route: 048
  11. WARFARIN SODIUM [Concomitant]
  12. CYTOXAN [Concomitant]
     Route: 048
  13. EPOGEN [Concomitant]
     Dosage: 13,000/20,000 UNIT
     Route: 042
  14. POTASSIUM CHLORIDE [Concomitant]
     Dosage: 10 MEQ, QD
  15. PRAVASTATIN [Concomitant]
     Indication: BLOOD CHOLESTEROL INCREASED
     Dosage: 40 MG, HS
     Route: 048
  16. ATENOLOL [Concomitant]
     Dosage: DAILY DOSE 50 MG
     Route: 048

REACTIONS (11)
  - NEPHROGENIC SYSTEMIC FIBROSIS [None]
  - GENERAL PHYSICAL HEALTH DETERIORATION [None]
  - GAIT DISTURBANCE [None]
  - DEPRESSION [None]
  - PAIN [None]
  - MUSCULOSKELETAL STIFFNESS [None]
  - ARTHRALGIA [None]
  - ANXIETY [None]
  - EMOTIONAL DISTRESS [None]
  - INSOMNIA [None]
  - INJURY [None]
